FAERS Safety Report 8443961-6 (Version None)
Quarter: 2012Q2

REPORT INFORMATION
  Report Type: 
  Country: None (occurrence: None)
  Receive Date: 20120618
  Receipt Date: 20120608
  Transmission Date: 20120825
  Serious: Yes (Hospitalization)
  Sender: FDA-Public Use
  Company Number: PHHY2012JP046827

PATIENT
  Sex: Male
  Weight: 3.136 kg

DRUGS (1)
  1. CARBAMAZEPINE [Suspect]
     Dosage: MATERNAL DOSE 200 MG
     Route: 064

REACTIONS (6)
  - PATENT DUCTUS ARTERIOSUS [None]
  - HYPERSENSITIVITY [None]
  - DRUG WITHDRAWAL SYNDROME [None]
  - FOETAL EXPOSURE DURING PREGNANCY [None]
  - TACHYPNOEA [None]
  - RETINAL HAEMORRHAGE [None]
